FAERS Safety Report 22358229 (Version 2)
Quarter: 2023Q2

REPORT INFORMATION
  Report Type: Spontaneous
  Country: US (occurrence: US)
  Receive Date: 20230524
  Receipt Date: 20230621
  Transmission Date: 20230722
  Serious: Yes (Other)
  Sender: FDA-Public Use
  Company Number: US-BRISTOL-MYERS SQUIBB COMPANY-2023-069179

PATIENT
  Age: 75 Year
  Sex: Female

DRUGS (2)
  1. REVLIMID [Suspect]
     Active Substance: LENALIDOMIDE
     Indication: Plasma cell myeloma in remission
     Route: 048
     Dates: end: 202304
  2. REVLIMID [Suspect]
     Active Substance: LENALIDOMIDE
     Dosage: START DATE: 23-MAY-2023; FREQ: TAKE 1 CAPSULE BY MOUTH DAILY
     Route: 048
     Dates: start: 202305

REACTIONS (4)
  - Traumatic fracture [Unknown]
  - Fall [Unknown]
  - Constipation [Unknown]
  - Skin disorder [Not Recovered/Not Resolved]

NARRATIVE: CASE EVENT DATE: 20230101
